FAERS Safety Report 5571284-1 (Version None)
Quarter: 2007Q4

REPORT INFORMATION
  Report Type: 
  Country: None (occurrence: None)
  Receive Date: 20071221
  Receipt Date: 20070425
  Transmission Date: 20080405
  Serious: No
  Sender: FDA-Public Use
  Company Number: A0648964A

PATIENT
  Sex: Female

DRUGS (4)
  1. FLONASE [Suspect]
     Indication: SEASONAL ALLERGY
     Route: 045
     Dates: start: 20040101
  2. BENADRYL [Concomitant]
  3. SUDAFED 12 HOUR [Concomitant]
  4. EXCEDRIN (MIGRAINE) [Concomitant]

REACTIONS (6)
  - BONE PAIN [None]
  - DRUG INEFFECTIVE [None]
  - EYE PAIN [None]
  - HEADACHE [None]
  - PAIN [None]
  - SINUS HEADACHE [None]
